FAERS Safety Report 6649713-1 (Version None)
Quarter: 2010Q1

REPORT INFORMATION
  Report Type: 
  Country: None (occurrence: None)
  Receive Date: 20100324
  Receipt Date: 20100324
  Transmission Date: 20100710
  Serious: Yes (Disabling, Other)
  Sender: FDA-Public Use
  Company Number: None

PATIENT
  Age: 50 Year
  Sex: Female
  Weight: 102.9665 kg

DRUGS (2)
  1. LISTERINE WHITENING JOHNSON + JOHNSON, MCNEIL-PPC, INC [Suspect]
     Indication: DENTAL DISORDER PROPHYLAXIS
     Dosage: 3 TEASPOONFULS 2 TIMES A DAY PO
     Route: 048
     Dates: start: 20090322, end: 20090412
  2. LISTERINE WHITENING PRE-BRUSH RINSE [Concomitant]

REACTIONS (3)
  - GLOSSODYNIA [None]
  - ORAL PAIN [None]
  - TONGUE DISCOLOURATION [None]
